FAERS Safety Report 15230342 (Version 1)
Quarter: 2018Q3

REPORT INFORMATION
  Report Type: Spontaneous
  Country: BG (occurrence: BG)
  Receive Date: 20180802
  Receipt Date: 20180802
  Transmission Date: 20181010
  Serious: Yes (Other)
  Sender: FDA-Public Use
  Company Number: BG-MACLEODS PHARMACEUTICALS US LTD-MAC2018015962

PATIENT

DRUGS (2)
  1. IRBESARTAN/HYDROCHLOROTHIAZIDE [Suspect]
     Active Substance: HYDROCHLOROTHIAZIDE\IRBESARTAN
     Indication: HYPERTENSION
     Dosage: UNK, (1?0?0), IRBESARTAN 150MG/HYDROCHLOROTHIAZIDE 12.5 MG
     Route: 065
  2. ASPIRIN. [Suspect]
     Active Substance: ASPIRIN
     Indication: HYPERTENSION
     Dosage: UNK, (0?0?1)
     Route: 065

REACTIONS (1)
  - Psoriasis [Unknown]
